FAERS Safety Report 25308265 (Version 2)
Quarter: 2025Q2

REPORT INFORMATION
  Report Type: Spontaneous
  Country: HU (occurrence: HU)
  Receive Date: 20250513
  Receipt Date: 20250527
  Transmission Date: 20250717
  Serious: Yes (Hospitalization, Other)
  Sender: NOVARTIS
  Company Number: HU-002147023-NVSC2025HU045710

PATIENT
  Age: 35 Day
  Sex: Female
  Weight: 4.8 kg

DRUGS (12)
  1. ZOLGENSMA [Suspect]
     Active Substance: ONASEMNOGENE ABEPARVOVEC-XIOI
     Indication: Spinal muscular atrophy
     Route: 042
     Dates: start: 20250103, end: 20250103
  2. SODIUM CHLORIDE [Concomitant]
     Active Substance: SODIUM CHLORIDE
     Indication: Product used for unknown indication
     Route: 042
     Dates: start: 20250103, end: 20250103
  3. PREDNISOLONE [Concomitant]
     Active Substance: PREDNISOLONE
     Indication: Prophylaxis
     Dosage: 5 MG, QD
     Route: 054
     Dates: start: 20250102, end: 20250131
  4. PREDNISOLONE [Concomitant]
     Active Substance: PREDNISOLONE
     Indication: Steroid withdrawal syndrome
     Dosage: 4 MG, QD
     Route: 054
     Dates: start: 20250201, end: 20250207
  5. PREDNISOLONE [Concomitant]
     Active Substance: PREDNISOLONE
     Indication: Prophylaxis
     Dosage: 3 MG, QD
     Route: 054
     Dates: start: 20250208, end: 20250214
  6. PREDNISOLONE [Concomitant]
     Active Substance: PREDNISOLONE
     Dosage: 2 MG, QD
     Route: 054
     Dates: start: 20250215, end: 20250221
  7. PREDNISOLONE [Concomitant]
     Active Substance: PREDNISOLONE
     Dosage: 1 MG, QD
     Route: 054
     Dates: start: 20250222, end: 20250227
  8. PREDNISOLONE [Concomitant]
     Active Substance: PREDNISOLONE
     Dosage: 0.5 MG, QD
     Route: 054
     Dates: start: 20250228, end: 20250306
  9. FAMOTIDINE [Concomitant]
     Active Substance: FAMOTIDINE
     Indication: Gastric prolapse
     Route: 048
     Dates: start: 20250102, end: 20250117
  10. FAMOTIDINE [Concomitant]
     Active Substance: FAMOTIDINE
     Indication: Prophylaxis
     Route: 054
     Dates: start: 20250118, end: 20250306
  11. VITAMIN D [Concomitant]
     Active Substance: VITAMIN D NOS
     Indication: Bone development abnormal
     Route: 048
     Dates: start: 20241219
  12. DIMETHICONE [Concomitant]
     Active Substance: DIMETHICONE
     Indication: Abdominal distension
     Route: 048
     Dates: start: 20241219

REACTIONS (8)
  - Transaminases increased [Recovering/Resolving]
  - Hypercalciuria [Recovering/Resolving]
  - Blood bilirubin increased [Recovering/Resolving]
  - Decreased appetite [Recovered/Resolved]
  - Pyrexia [Recovered/Resolved]
  - Vomiting [Recovered/Resolved]
  - Troponin I increased [Recovering/Resolving]
  - International normalised ratio increased [Unknown]

NARRATIVE: CASE EVENT DATE: 20250105
